FAERS Safety Report 6590046-X (Version None)
Quarter: 2010Q1

REPORT INFORMATION
  Report Type: 
  Country: None (occurrence: None)
  Receive Date: 20100219
  Receipt Date: 20100211
  Transmission Date: 20100710
  Serious: Yes (Hospitalization)
  Sender: FDA-Public Use
  Company Number: PHHO2010BE02346

PATIENT
  Sex: Male

DRUGS (2)
  1. NEORAL [Suspect]
     Indication: RENAL TRANSPLANT
     Dosage: UNK
     Route: 048
     Dates: start: 20091103
  2. NO TREATMENT RECEIVED NOMED [Suspect]
     Indication: RENAL TRANSPLANT
     Dosage: UNK

REACTIONS (3)
  - BLOOD CREATININE INCREASED [None]
  - MYCOTIC ANEURYSM [None]
  - RENAL ANEURYSM [None]
